FAERS Safety Report 10362709 (Version 1)
Quarter: 2014Q3

REPORT INFORMATION
  Report Type: Spontaneous
  Country: US (occurrence: None)
  Receive Date: 20140730
  Receipt Date: 20140730
  Transmission Date: 20150326
  Serious: Yes (Hospitalization)
  Sender: FDA-Public Use
  Company Number: 1713747-2014-99955

PATIENT
  Age: 59 Year
  Sex: Female

DRUGS (4)
  1. DELFLEX [Suspect]
     Active Substance: CALCIUM CHLORIDE\DEXTROSE MONOHYDRATE\MAGNESIUM CHLORIDE\SODIUM CHLORIDE\SODIUM LACTATE
     Indication: RENAL FAILURE CHRONIC
  2. LIBERTY CYCLER [Concomitant]
     Active Substance: DEVICE
  3. LIBERTY CYCLER SET [Concomitant]
  4. DELFLEX [Suspect]
     Active Substance: CALCIUM CHLORIDE\DEXTROSE MONOHYDRATE\MAGNESIUM CHLORIDE\SODIUM CHLORIDE\SODIUM LACTATE
     Indication: PERITONEAL DIALYSIS

REACTIONS (6)
  - Productive cough [None]
  - Pyrexia [None]
  - Bronchospasm [None]
  - Wheezing [None]
  - Oropharyngeal pain [None]
  - Pneumonia [None]

NARRATIVE: CASE EVENT DATE: 20140317
